FAERS Safety Report 6090944-X (Version None)
Quarter: 2009Q1

REPORT INFORMATION
  Report Type: 
  Country: None (occurrence: None)
  Receive Date: 20090225
  Receipt Date: 20090220
  Transmission Date: 20090719
  Serious: Yes (Other)
  Sender: FDA-Public Use
  Company Number: JP-SP-2008-03961

PATIENT
  Age: 62 Year
  Sex: Male

DRUGS (1)
  1. IMMUCYST [Suspect]
     Indication: BLADDER CANCER
     Route: 043
     Dates: start: 20081028, end: 20081211

REACTIONS (6)
  - ARTHRALGIA [None]
  - CONJUNCTIVITIS [None]
  - EYE DISCHARGE [None]
  - EYE PRURITUS [None]
  - OCULAR HYPERAEMIA [None]
  - REITER'S SYNDROME [None]
